FAERS Safety Report 7788788-3 (Version None)
Quarter: 2011Q3

REPORT INFORMATION
  Report Type: 
  Country: None (occurrence: None)
  Receive Date: 20110930
  Receipt Date: 20110915
  Transmission Date: 20111222
  Serious: No
  Sender: FDA-Public Use
  Company Number: US-B.I. PHARMACEUTICALS,INC./RIDGEFIELD-2011-BP-22337BP

PATIENT
  Age: 57 Year
  Sex: Male

DRUGS (1)
  1. FLOMAX [Suspect]
     Indication: PROSTATOMEGALY
     Dosage: 0.4 MG
     Route: 048
     Dates: start: 20100101

REACTIONS (6)
  - PAIN [None]
  - DYSURIA [None]
  - SWELLING [None]
  - ADVERSE DRUG REACTION [None]
  - CONSTIPATION [None]
  - ABDOMINAL DISTENSION [None]
